FAERS Safety Report 9756058 (Version 1)
Quarter: 2013Q4

REPORT INFORMATION
  Report Type: Spontaneous
  Country: FR (occurrence: FR)
  Receive Date: 20131213
  Receipt Date: 20131213
  Transmission Date: 20140711
  Serious: Yes (Death)
  Sender: FDA-Public Use
  Company Number: FR-GLAXOSMITHKLINE-B0950930A

PATIENT
  Age: 33 Year
  Sex: Male
  Weight: 53 kg

DRUGS (16)
  1. WELLVONE [Suspect]
     Indication: PNEUMOCYSTIS JIROVECII INFECTION
     Route: 048
     Dates: start: 20130620, end: 20130716
  2. METHOTREXATE [Suspect]
     Indication: CENTRAL NERVOUS SYSTEM LYMPHOMA
     Dosage: 4800MG CYCLIC
     Route: 042
     Dates: start: 20130705, end: 20130711
  3. VIRAMUNE [Suspect]
     Indication: HIV INFECTION
     Route: 048
     Dates: start: 20130703, end: 20130716
  4. LOVENOX [Suspect]
     Indication: PRODUCT USED FOR UNKNOWN INDICATION
     Route: 058
     Dates: start: 20130627, end: 20130715
  5. KEPPRA [Suspect]
     Indication: EPILEPSY
     Route: 042
     Dates: start: 20130702, end: 20130716
  6. PARACETAMOL [Concomitant]
     Indication: PRODUCT USED FOR UNKNOWN INDICATION
     Route: 065
     Dates: start: 20130620
  7. ZIAGEN [Concomitant]
     Indication: HIV INFECTION
     Route: 048
     Dates: start: 20130704, end: 20130716
  8. CALCIUM FOLINATE [Concomitant]
     Indication: PRODUCT USED FOR UNKNOWN INDICATION
     Route: 048
     Dates: start: 20130705, end: 20130716
  9. EPIVIR [Concomitant]
     Indication: HIV INFECTION
     Route: 048
     Dates: start: 20130703, end: 20130707
  10. CERNEVIT [Concomitant]
     Indication: PRODUCT USED FOR UNKNOWN INDICATION
     Route: 065
     Dates: start: 20130702
  11. SOLUMEDROL [Concomitant]
     Indication: PRODUCT USED FOR UNKNOWN INDICATION
     Route: 042
     Dates: start: 20130702, end: 20130716
  12. POLYSORBATE 80 [Concomitant]
     Indication: PRODUCT USED FOR UNKNOWN INDICATION
     Route: 065
     Dates: start: 20130701
  13. FUNGIZONE [Concomitant]
     Indication: PRODUCT USED FOR UNKNOWN INDICATION
     Route: 065
     Dates: start: 20130624
  14. ORACILLINE [Concomitant]
     Indication: STAPHYLOCOCCAL BACTERAEMIA
     Route: 065
  15. KALETRA [Concomitant]
     Indication: HIV INFECTION
     Route: 048
     Dates: start: 20130625, end: 20130716
  16. DIAMOX [Concomitant]
     Indication: PRODUCT USED FOR UNKNOWN INDICATION
     Route: 065
     Dates: start: 20130705

REACTIONS (7)
  - Anaemia [Fatal]
  - Thrombocytopenia [Fatal]
  - Leukopenia [Fatal]
  - Bone marrow failure [Fatal]
  - Tracheal haemorrhage [Fatal]
  - Hypoxia [Fatal]
  - Coma [Not Recovered/Not Resolved]
